FAERS Safety Report 24761697 (Version 1)
Quarter: 2024Q4

REPORT INFORMATION
  Report Type: Spontaneous
  Country: PT (occurrence: PT)
  Receive Date: 20241220
  Receipt Date: 20241220
  Transmission Date: 20250114
  Serious: Yes (Other)
  Sender: BOEHRINGER INGELHEIM
  Company Number: PT-BoehringerIngelheim-2024-BI-068607

PATIENT
  Age: 23 Year
  Sex: Male

DRUGS (1)
  1. SPESOLIMAB [Suspect]
     Active Substance: SPESOLIMAB
     Indication: Generalised pustular psoriasis
     Dosage: SINGLE ADMINISTRATION BY 90-MINUTE INFUSION
     Route: 042
     Dates: start: 20241204, end: 20241204

REACTIONS (3)
  - Myocarditis [Recovering/Resolving]
  - Troponin increased [Recovering/Resolving]
  - Abdominal pain [Unknown]

NARRATIVE: CASE EVENT DATE: 20241206
